FAERS Safety Report 4653067-X (Version None)
Quarter: 2005Q2

REPORT INFORMATION
  Report Type: 
  Country: None (occurrence: None)
  Receive Date: 20050505
  Receipt Date: 20050425
  Transmission Date: 20051028
  Serious: Yes (Disabling)
  Sender: FDA-Public Use
  Company Number: DK-MERCK-0504DNK00023

PATIENT
  Age: 52 Year
  Sex: Male
  Weight: 100 kg

DRUGS (3)
  1. VIOXX [Suspect]
     Indication: ARTHRITIS
     Route: 048
     Dates: start: 20021119, end: 20040105
  2. VIOXX [Suspect]
     Indication: PAIN
     Route: 048
     Dates: start: 20021119, end: 20040105
  3. ACETAMINOPHEN [Concomitant]
     Route: 065

REACTIONS (3)
  - INNER EAR DISORDER [None]
  - MENIERE'S DISEASE [None]
  - THROMBOSIS [None]
